FAERS Safety Report 7033543-5 (Version None)
Quarter: 2010Q4

REPORT INFORMATION
  Report Type: 
  Country: None (occurrence: None)
  Receive Date: 20101007
  Receipt Date: 20100923
  Transmission Date: 20110411
  Serious: Yes (Other)
  Sender: FDA-Public Use
  Company Number: PHHY2010NL63416

PATIENT
  Sex: Female

DRUGS (3)
  1. FEMARA [Suspect]
     Indication: BREAST CANCER
     Route: 048
  2. CALCIUM WITH VITAMIN D [Concomitant]
  3. SIMVASTATIN [Concomitant]

REACTIONS (1)
  - BLINDNESS [None]
